FAERS Safety Report 4616160-3 (Version None)
Quarter: 2005Q1

REPORT INFORMATION
  Report Type: 
  Country: None (occurrence: None)
  Receive Date: 20050323
  Receipt Date: 20041228
  Transmission Date: 20050727
  Serious: Yes (Life-Threatening)
  Sender: FDA-Public Use
  Company Number: JP-BOEHRINGER INGELHEIM PHARMMACEUTICALS, INC.-2004-BP-14428NB

PATIENT
  Sex: Male
  Weight: 50 kg

DRUGS (2)
  1. MOBIC [Suspect]
     Indication: RHEUMATOID ARTHRITIS
     Route: 048
     Dates: start: 20041214, end: 20041228
  2. CLINDAMYCIN [Concomitant]
     Route: 048
     Dates: start: 20041206, end: 20041227

REACTIONS (1)
  - AGRANULOCYTOSIS [None]
